FAERS Safety Report 19114395 (Version 1)
Quarter: 2021Q2

REPORT INFORMATION
  Report Type: Not Available
  Country: None (occurrence: None)
  Receive Date: 20210408
  Receipt Date: 20210408
  Transmission Date: 20210717
  Serious: No
  Sender: FDA-Public Use
  Company Number: US-AKORN-163626

PATIENT
  Age: 7 Month
  Sex: Female

DRUGS (1)
  1. GABAPENTIN ORAL SOLUTION [Suspect]
     Active Substance: GABAPENTIN

REACTIONS (2)
  - Product administered to patient of inappropriate age [Unknown]
  - Sleep disorder [Unknown]
